FAERS Safety Report 13744919 (Version 1)
Quarter: 2017Q3

REPORT INFORMATION
  Report Type: Spontaneous
  Country: US (occurrence: US)
  Receive Date: 20170711
  Receipt Date: 20170711
  Transmission Date: 20171127
  Serious: Yes (Death)
  Sender: FDA-Public Use
  Company Number: None

PATIENT
  Age: 70 Year
  Sex: Female
  Weight: 54 kg

DRUGS (1)
  1. ATORVASTATIN [Suspect]
     Active Substance: ATORVASTATIN
     Indication: PRODUCT USED FOR UNKNOWN INDICATION
     Dates: start: 20130101, end: 20170213

REACTIONS (13)
  - Glucose tolerance impaired [None]
  - Muscle atrophy [None]
  - Amnesia [None]
  - Weight decreased [None]
  - Cough [None]
  - Speech disorder [None]
  - Diarrhoea [None]
  - Confusional state [None]
  - Urinary tract infection [None]
  - Pneumonia aspiration [None]
  - Aspiration [None]
  - Fall [None]
  - Dysphagia [None]

NARRATIVE: CASE EVENT DATE: 20140701
